FAERS Safety Report 25020778 (Version 1)
Quarter: 2025Q1

REPORT INFORMATION
  Report Type: Spontaneous
  Country: US (occurrence: US)
  Receive Date: 20250227
  Receipt Date: 20250227
  Transmission Date: 20250409
  Serious: No
  Sender: RK PHARMA
  Company Number: US-RK PHARMA, INC-20210500005

PATIENT

DRUGS (1)
  1. MITOMYCIN [Suspect]
     Active Substance: MITOMYCIN

REACTIONS (2)
  - Product temperature excursion issue [Not Recovered/Not Resolved]
  - Intercepted medication error [Not Recovered/Not Resolved]
